FAERS Safety Report 13538521 (Version 1)
Quarter: 2017Q2

REPORT INFORMATION
  Report Type: Spontaneous
  Country: US (occurrence: US)
  Receive Date: 20170512
  Receipt Date: 20170512
  Transmission Date: 20170830
  Serious: Yes (Hospitalization)
  Sender: FDA-Public Use
  Company Number: US-ORPHAN EUROPE-2020623

PATIENT
  Age: 4 Year
  Sex: Female

DRUGS (1)
  1. CYSTADANE [Suspect]
     Active Substance: BETAINE
     Indication: HOMOCYSTINURIA
     Route: 048

REACTIONS (3)
  - Respiratory arrest [Unknown]
  - Loss of consciousness [Unknown]
  - Hypotonia [Unknown]

NARRATIVE: CASE EVENT DATE: 201704
